FAERS Safety Report 10907972 (Version 1)
Quarter: 2015Q1

REPORT INFORMATION
  Report Type: Spontaneous
  Country: US (occurrence: None)
  Receive Date: 20150309
  Receipt Date: 20150309
  Transmission Date: 20150721
  Serious: Yes (Hospitalization)
  Sender: FDA-Public Use
  Company Number: None

PATIENT
  Age: 55 Year
  Sex: Male
  Weight: 104.5 kg

DRUGS (1)
  1. VANCOMYCIN [Suspect]
     Active Substance: VANCOMYCIN
     Indication: VASCULAR GRAFT
     Route: 042
     Dates: start: 20141002, end: 20141027

REACTIONS (2)
  - Incorrect drug administration duration [None]
  - Neutropenia [None]

NARRATIVE: CASE EVENT DATE: 20141027
